FAERS Safety Report 14976825 (Version 1)
Quarter: 2018Q2

REPORT INFORMATION
  Report Type: Spontaneous
  Country: CN (occurrence: CN)
  Receive Date: 20180605
  Receipt Date: 20180605
  Transmission Date: 20180711
  Serious: Yes (Hospitalization, Other)
  Sender: FDA-Public Use
  Company Number: CN-GLAXOSMITHKLINE-CN2018099220

PATIENT
  Age: 55 Year
  Sex: Female
  Weight: 48 kg

DRUGS (1)
  1. VOLTAREN [Suspect]
     Active Substance: DICLOFENAC SODIUM
     Indication: BACK PAIN
     Dosage: 25 MG, TID (AT THE AT FASTING STATE FOR THE FIRST TIME AND THEN TID)
     Route: 048
     Dates: start: 20180407, end: 20180407

REACTIONS (4)
  - Shock [Recovering/Resolving]
  - Vision blurred [Recovering/Resolving]
  - Quadriplegia [Recovering/Resolving]
  - Macule [Recovering/Resolving]

NARRATIVE: CASE EVENT DATE: 20180407
